FAERS Safety Report 6541552-5 (Version None)
Quarter: 2010Q1

REPORT INFORMATION
  Report Type: 
  Country: None (occurrence: None)
  Receive Date: 20100119
  Receipt Date: 20100114
  Transmission Date: 20100710
  Serious: Yes (Hospitalization, Other)
  Sender: FDA-Public Use
  Company Number: US-ROCHE-656520

PATIENT
  Sex: Female
  Weight: 52.2 kg

DRUGS (2)
  1. CAPECITABINE [Suspect]
     Dosage: DOSING REGIMEN REPORTED AS 1000 MG IN MORNING AND 500 MG IN THE EVENING.
     Route: 048
     Dates: start: 20090824, end: 20091214
  2. ERBITUX [Concomitant]
     Route: 042

REACTIONS (6)
  - ABDOMINAL PAIN UPPER [None]
  - ARRHYTHMIA [None]
  - HEART RATE INCREASED [None]
  - MALIGNANT NEOPLASM PROGRESSION [None]
  - NASAL CONGESTION [None]
  - PRURITUS [None]
